FAERS Safety Report 14100948 (Version 3)
Quarter: 2017Q4

REPORT INFORMATION
  Report Type: Spontaneous
  Country: SE (occurrence: SE)
  Receive Date: 20171018
  Receipt Date: 20171120
  Transmission Date: 20180321
  Serious: Yes (Other)
  Sender: FDA-Public Use
  Company Number: SE-ABBVIE-17K-150-2133688-00

PATIENT
  Age: 45 Year
  Sex: Female

DRUGS (3)
  1. NEBIDO [Suspect]
     Active Substance: TESTOSTERONE UNDECANOATE
     Route: 065
     Dates: start: 2016, end: 2016
  2. TESTOSTERONE. [Suspect]
     Active Substance: TESTOSTERONE
     Indication: TRANS-SEXUALISM
     Route: 061
  3. NEBIDO [Suspect]
     Active Substance: TESTOSTERONE UNDECANOATE
     Indication: PRODUCT USED FOR UNKNOWN INDICATION
     Route: 065

REACTIONS (8)
  - Anxiety [Recovered/Resolved]
  - Cough [Recovered/Resolved]
  - Anticipatory anxiety [Unknown]
  - Panic attack [Recovered/Resolved]
  - Pulmonary oil microembolism [Recovered/Resolved]
  - Malaise [Recovered/Resolved]
  - Hypersensitivity [Recovered/Resolved]
  - Heart rate increased [Recovered/Resolved]

NARRATIVE: CASE EVENT DATE: 2014
